FAERS Safety Report 5638974-3 (Version None)
Quarter: 2008Q1

REPORT INFORMATION
  Report Type: 
  Country: None (occurrence: None)
  Receive Date: 20080226
  Receipt Date: 20080218
  Transmission Date: 20080703
  Serious: Yes (Other)
  Sender: FDA-Public Use
  Company Number: PHBS2008BR00547

PATIENT
  Age: 54 Year
  Sex: Female
  Weight: 50 kg

DRUGS (5)
  1. ZOMETA [Suspect]
     Indication: METASTASES TO BONE
     Dosage: MONTHLY
     Route: 042
     Dates: start: 20060201, end: 20071001
  2. SYNTHROID [Concomitant]
     Indication: HYPOTHYROIDISM
     Route: 048
  3. OMEPRAZOLE [Concomitant]
     Indication: ABDOMINAL PAIN UPPER
     Route: 048
  4. RADIOTHERAPY [Concomitant]
     Dates: start: 20060201
  5. ANTINEOPLASTIC AGENTS [Concomitant]
     Dates: start: 20060201

REACTIONS (8)
  - DEBRIDEMENT [None]
  - IMPAIRED HEALING [None]
  - OSTEONECROSIS [None]
  - PAIN [None]
  - TOOTH EXTRACTION [None]
  - VOMITING [None]
  - WEIGHT DECREASED [None]
  - WOUND TREATMENT [None]
